FAERS Safety Report 16755787 (Version 8)
Quarter: 2020Q3

REPORT INFORMATION
  Report Type: Spontaneous
  Country: US (occurrence: US)
  Receive Date: 20190829
  Receipt Date: 20200901
  Transmission Date: 20201102
  Serious: Yes (Life-Threatening, Hospitalization, Disabling)
  Sender: FDA-Public Use
  Company Number: US-AMERICAN REGENT INC-20181817

PATIENT
  Age: 45 Year
  Sex: Female
  Weight: 54.5 kg

DRUGS (5)
  1. INJECTAFER [Suspect]
     Active Substance: FERRIC CARBOXYMALTOSE
     Indication: RECTAL HAEMORRHAGE
  2. INJECTAFER [Suspect]
     Active Substance: FERRIC CARBOXYMALTOSE
     Indication: MENORRHAGIA
  3. INJECTAFER [Suspect]
     Active Substance: FERRIC CARBOXYMALTOSE
     Indication: IRON DEFICIENCY ANAEMIA
     Dosage: 750 MILLIGRAM IN SODIUM CHLORIDE 0.9% 225 ML IVPB
     Route: 042
     Dates: start: 20180910, end: 20180910
  4. INJECTAFER [Suspect]
     Active Substance: FERRIC CARBOXYMALTOSE
     Indication: HAEMORRHAGE
     Dosage: 750 MILLIGRAM IN SODIUM CHLORIDE 0.9% 225 ML IVPB
     Route: 042
     Dates: start: 20180917, end: 20180917
  5. COLACE [Concomitant]
     Active Substance: DOCUSATE SODIUM
     Indication: CONSTIPATION
     Dosage: 100 MILLIGRAM, BID AS NEEDED
     Route: 048
     Dates: start: 20180831

REACTIONS (13)
  - Anhedonia [Not Recovered/Not Resolved]
  - Fibroblast growth factor 23 increased [Not Recovered/Not Resolved]
  - Paraesthesia [Recovered/Resolved]
  - Malaise [Not Recovered/Not Resolved]
  - Product quality issue [Unknown]
  - Influenza like illness [Unknown]
  - Tachycardia [Not Recovered/Not Resolved]
  - Anxiety [Recovered/Resolved]
  - Pain [Not Recovered/Not Resolved]
  - Impaired self-care [Not Recovered/Not Resolved]
  - Emotional distress [Not Recovered/Not Resolved]
  - Hypophosphataemia [Not Recovered/Not Resolved]
  - Dizziness [Not Recovered/Not Resolved]

NARRATIVE: CASE EVENT DATE: 2018
